FAERS Safety Report 25564887 (Version 3)
Quarter: 2025Q3

REPORT INFORMATION
  Report Type: Report from Study
  Country: GB (occurrence: GB)
  Receive Date: 20250716
  Receipt Date: 20250729
  Transmission Date: 20251021
  Serious: Yes (Death)
  Sender: ALEXION PHARMACEUTICALS
  Company Number: GB-AstraZeneca-CH-00904222A

PATIENT
  Sex: Female

DRUGS (2)
  1. BENRALIZUMAB [Suspect]
     Active Substance: BENRALIZUMAB
     Indication: Asthma
  2. BENRALIZUMAB [Suspect]
     Active Substance: BENRALIZUMAB

REACTIONS (9)
  - Death [Fatal]
  - Hepatic failure [Fatal]
  - Hepatic cirrhosis [Fatal]
  - Umbilical hernia, obstructive [Fatal]
  - Lymphoedema [Fatal]
  - Asthma [Fatal]
  - Diabetes mellitus [Fatal]
  - Vulval cancer [Fatal]
  - Obstructive sleep apnoea syndrome [Fatal]
